FAERS Safety Report 19461419 (Version 1)
Quarter: 2021Q2

REPORT INFORMATION
  Report Type: Spontaneous
  Country: FR (occurrence: FR)
  Receive Date: 20210625
  Receipt Date: 20210625
  Transmission Date: 20210717
  Serious: Yes (Other)
  Sender: FDA-Public Use
  Company Number: FR-TEVA-2021-FR-1925316

PATIENT
  Age: 22 Year
  Sex: Female
  Weight: 49 kg

DRUGS (2)
  1. OPTIDRIL 30 MICROGRAMMES/150 MICROGRAMMES, COMPRIME PELLICULE [Concomitant]
  2. ISOTRETINOINE ACNETRAIT 20 MG, CAPSULE MOLLE [Suspect]
     Active Substance: ISOTRETINOIN
     Indication: ACNE CYSTIC
     Route: 048
     Dates: start: 20210120, end: 20210407

REACTIONS (3)
  - Hallucination, tactile [Recovering/Resolving]
  - Suicidal ideation [Recovering/Resolving]
  - Affective disorder [Recovering/Resolving]

NARRATIVE: CASE EVENT DATE: 20210314
